FAERS Safety Report 25064451 (Version 2)
Quarter: 2025Q1

REPORT INFORMATION
  Report Type: Spontaneous
  Country: RU (occurrence: RU)
  Receive Date: 20250311
  Receipt Date: 20250325
  Transmission Date: 20250409
  Serious: Yes (Other)
  Sender: RANBAXY
  Company Number: RU-SUN PHARMACEUTICAL INDUSTRIES LTD-2025R1-497639

PATIENT
  Age: 27 Year
  Sex: Female
  Weight: 60 kg

DRUGS (1)
  1. DROSPIRENONE\ETHINYL ESTRADIOL [Suspect]
     Active Substance: DROSPIRENONE\ETHINYL ESTRADIOL
     Indication: Contraception
     Dosage: 1 TABLET, DAILY
     Route: 065
     Dates: start: 20250120, end: 20250204

REACTIONS (6)
  - Weight increased [Recovering/Resolving]
  - Libido decreased [Recovering/Resolving]
  - Tearfulness [Recovering/Resolving]
  - Irritability [Recovering/Resolving]
  - Increased appetite [Recovering/Resolving]
  - Swelling [Unknown]
